FAERS Safety Report 10032808 (Version 2)
Quarter: 2014Q2

REPORT INFORMATION
  Report Type: Spontaneous
  Country: US (occurrence: US)
  Receive Date: 20140324
  Receipt Date: 20140424
  Transmission Date: 20141212
  Serious: No
  Sender: FDA-Public Use
  Company Number: US-B.I. PHARMACEUTICALS,INC./RIDGEFIELD-2014-BI-11750BP

PATIENT
  Age: 67 Year
  Sex: Male

DRUGS (1)
  1. COMBIVENT [Suspect]
     Indication: CHRONIC OBSTRUCTIVE PULMONARY DISEASE
     Dosage: DOSE PER APPLICATION: 40 MCG / 200 MCG; DAILY DOSE: 160 MCG / 800 MCG
     Route: 055
     Dates: start: 201311, end: 201401

REACTIONS (4)
  - Cough [Recovered/Resolved]
  - Choking [Recovered/Resolved]
  - Foreign body [Recovered/Resolved]
  - Overdose [Recovered/Resolved]
